FAERS Safety Report 6964500-2 (Version None)
Quarter: 2010Q3

REPORT INFORMATION
  Report Type: 
  Country: None (occurrence: None)
  Receive Date: 20100903
  Receipt Date: 20100824
  Transmission Date: 20110219
  Serious: Yes (Hospitalization, Other)
  Sender: FDA-Public Use
  Company Number: US-PFIZER INC-2010107382

PATIENT
  Sex: Male
  Weight: 158.73 kg

DRUGS (6)
  1. VIAGRA [Suspect]
     Indication: ERECTILE DYSFUNCTION
     Dosage: 100 MG, AS NEEDED
     Route: 048
     Dates: start: 19980101
  2. VASOTEC [Concomitant]
     Indication: HYPERTENSION
     Dosage: UNK
  3. LOPRESSOR [Concomitant]
     Indication: HYPERTENSION
     Dosage: UNK
  4. METFORMIN [Concomitant]
     Indication: GLUCOSE TOLERANCE IMPAIRED
     Dosage: 500 MG, DAILY
  5. LOVASTATIN [Concomitant]
     Indication: BLOOD CHOLESTEROL INCREASED
     Dosage: UNK
  6. WARFARIN [Concomitant]
     Indication: THROMBOSIS
     Dosage: UNK

REACTIONS (3)
  - BLINDNESS UNILATERAL [None]
  - FALL [None]
  - LIMB CRUSHING INJURY [None]
